FAERS Safety Report 19074268 (Version 1)
Quarter: 2021Q1

REPORT INFORMATION
  Report Type: Report from Study
  Country: IE (occurrence: IE)
  Receive Date: 20210330
  Receipt Date: 20210330
  Transmission Date: 20210420
  Serious: Yes (Hospitalization)
  Sender: FDA-Public Use
  Company Number: IE-AMGEN-IRLSL2021044638

PATIENT
  Age: 67 Year
  Sex: Female

DRUGS (5)
  1. PANTOPRAZOLE [Concomitant]
     Active Substance: PANTOPRAZOLE
     Dosage: 20 MILLIGRAM, QD (ONCE DAILY)
     Route: 050
  2. XANAX [Concomitant]
     Active Substance: ALPRAZOLAM
     Dosage: 10 MILLIGRAM, AS NECESSARY (PRN (AS REQUIRED)
     Route: 050
  3. VALOID [CYCLIZINE LACTATE] [Concomitant]
     Dosage: 50 MILLIGRAM, TID (TDS)
     Route: 050
  4. NEULASTA [Suspect]
     Active Substance: PEGFILGRASTIM
     Indication: PRODUCT USED FOR UNKNOWN INDICATION
     Dosage: 6 MILLIGRAM, Q3WK (POST CHEMOTHERAPY 3 WEEKLY CYCLE)
     Route: 058
  5. DEXAMETHASONE. [Concomitant]
     Active Substance: DEXAMETHASONE
     Dosage: 4 MILLIGRAM, BID (BD)
     Route: 050

REACTIONS (2)
  - Bone pain [Recovered/Resolved]
  - Body temperature increased [Recovered/Resolved]

NARRATIVE: CASE EVENT DATE: 20210301
